FAERS Safety Report 8747215 (Version 4)
Quarter: 2014Q4

REPORT INFORMATION
  Report Type: Spontaneous
  Country: US (occurrence: US)
  Receive Date: 20120827
  Receipt Date: 20141230
  Transmission Date: 20150529
  Serious: No
  Sender: FDA-Public Use
  Company Number: AE-ASTRAZENECA-2012SE54320

PATIENT
  Age: 36 Year
  Sex: Female
  Weight: 111.1 kg

DRUGS (5)
  1. PRILOSEC [Suspect]
     Active Substance: OMEPRAZOLE MAGNESIUM
     Indication: ULCER
     Route: 048
     Dates: start: 1994
  2. NEXIUM [Suspect]
     Active Substance: ESOMEPRAZOLE MAGNESIUM
     Indication: ULCER
     Route: 048
  3. ALERGY MEDICATION [Concomitant]
     Indication: MULTIPLE ALLERGIES
  4. NEXIUM [Suspect]
     Active Substance: ESOMEPRAZOLE MAGNESIUM
     Indication: ULCER
     Route: 048
  5. SINUS MEDICATION [Concomitant]
     Active Substance: UNSPECIFIED INGREDIENT
     Indication: SINUSITIS

REACTIONS (6)
  - Oropharyngeal pain [Unknown]
  - Drug ineffective [Unknown]
  - Product use issue [Unknown]
  - Drug dose omission [Unknown]
  - Bacterial infection [Unknown]
  - Malaise [Unknown]
